FAERS Safety Report 5359145-4 (Version None)
Quarter: 2007Q2

REPORT INFORMATION
  Report Type: 
  Country: None (occurrence: None)
  Receive Date: 20070530
  Receipt Date: 20070205
  Transmission Date: 20071010
  Serious: No
  Sender: FDA-Public Use
  Company Number: 2007PV029547

PATIENT
  Age: 41 Year
  Sex: Male
  Weight: 104.3273 kg

DRUGS (1)
  1. BYETTA [Suspect]
     Indication: DIABETES MELLITUS NON-INSULIN-DEPENDENT
     Dosage: 5 MCG; BID; SC
     Route: 058
     Dates: start: 20070101

REACTIONS (4)
  - DECREASED APPETITE [None]
  - FEELING JITTERY [None]
  - HEADACHE [None]
  - HEART RATE INCREASED [None]
